FAERS Safety Report 25110146 (Version 1)
Quarter: 2025Q1

REPORT INFORMATION
  Report Type: Spontaneous
  Country: US (occurrence: US)
  Receive Date: 20250324
  Receipt Date: 20250324
  Transmission Date: 20250409
  Serious: Yes (Other)
  Sender: UROGEN PHARMA
  Company Number: US-UROGEN PHARMA LTD.-2025-UGN-000011

PATIENT

DRUGS (4)
  1. JELMYTO [Suspect]
     Active Substance: MITOMYCIN
     Indication: Product used for unknown indication
     Route: 065
  2. JELMYTO [Suspect]
     Active Substance: MITOMYCIN
     Route: 065
  3. JELMYTO [Suspect]
     Active Substance: MITOMYCIN
     Route: 065
  4. JELMYTO [Suspect]
     Active Substance: MITOMYCIN
     Route: 065
     Dates: start: 20250130, end: 20250130

REACTIONS (1)
  - Ureteric stenosis [Unknown]
